FAERS Safety Report 8417291-2 (Version None)
Quarter: 2012Q2

REPORT INFORMATION
  Report Type: 
  Country: None (occurrence: None)
  Receive Date: 20120606
  Receipt Date: 20120522
  Transmission Date: 20120825
  Serious: No
  Sender: FDA-Public Use
  Company Number: US-ASTRAZENECA-2012SE32784

PATIENT
  Sex: Male

DRUGS (3)
  1. DIURETIC [Concomitant]
  2. IMMUNOSUPPRESSANT [Concomitant]
  3. BRILINTA [Suspect]
     Route: 048
     Dates: end: 20120518

REACTIONS (2)
  - DYSPNOEA [None]
  - ANAEMIA [None]
